FAERS Safety Report 4836321-8 (Version None)
Quarter: 2005Q4

REPORT INFORMATION
  Report Type: 
  Country: None (occurrence: None)
  Receive Date: 20051121
  Receipt Date: 20051121
  Transmission Date: 20060501
  Serious: Yes (Life-Threatening, Other)
  Sender: FDA-Public Use
  Company Number: None

PATIENT
  Age: 65 Year
  Sex: Male
  Weight: 108.8633 kg

DRUGS (1)
  1. LAMISIL [Suspect]
     Indication: TINEA PEDIS
     Dosage: 250 MG   TWICE DAY PER DR   PO
     Route: 048
     Dates: start: 20050426, end: 20050503

REACTIONS (13)
  - ABDOMINAL DISTENSION [None]
  - ARRHYTHMIA [None]
  - ASTHENIA [None]
  - BLISTER [None]
  - CARDIOVERSION [None]
  - DACRYOSTENOSIS ACQUIRED [None]
  - DYSPNOEA [None]
  - GINGIVAL RECESSION [None]
  - LETHARGY [None]
  - MALAISE [None]
  - MOOD SWINGS [None]
  - RASH [None]
  - SKIN EXFOLIATION [None]
